FAERS Safety Report 5948497-X (Version None)
Quarter: 2008Q4

REPORT INFORMATION
  Report Type: 
  Country: None (occurrence: None)
  Receive Date: 20081111
  Receipt Date: 20081107
  Transmission Date: 20090506
  Serious: Yes (Other)
  Sender: FDA-Public Use
  Company Number: B0544385A

PATIENT
  Age: 60 Year
  Sex: Female

DRUGS (1)
  1. PAXIL [Suspect]
     Indication: DEPRESSION
     Dosage: 30MG PER DAY
     Route: 048

REACTIONS (2)
  - AFFECT LABILITY [None]
  - DEPRESSED LEVEL OF CONSCIOUSNESS [None]
